FAERS Safety Report 18009374 (Version 1)
Quarter: 2020Q3

REPORT INFORMATION
  Report Type: Other
  Country: AU (occurrence: AU)
  Receive Date: 20200710
  Receipt Date: 20200710
  Transmission Date: 20201103
  Serious: Yes (Hospitalization, Other)
  Sender: FDA-Public Use
  Company Number: AU-NEOPHARMA INC-000340

PATIENT
  Age: 53 Year
  Sex: Male

DRUGS (4)
  1. AMOXICILLIN/CLAVULANIC ACID [Suspect]
     Active Substance: AMOXICILLIN\CLAVULANIC ACID
     Indication: PRODUCT USED FOR UNKNOWN INDICATION
  2. ADRENALINE [Suspect]
     Active Substance: EPINEPHRINE
     Indication: ANAPHYLACTIC REACTION
     Dosage: TWO INJECTIONS OF 0.5 MG, INTRAMUSCULARLY.
     Route: 030
  3. HYDROCORTISONE. [Concomitant]
     Active Substance: HYDROCORTISONE
     Indication: ANAPHYLACTIC REACTION
     Dosage: 200 MG, INTRAVENOUSLY.
     Route: 042
  4. ISOTONIC FLUID [Concomitant]
     Indication: ANAPHYLACTIC REACTION
     Dosage: 700 ML, IV.
     Route: 042

REACTIONS (3)
  - Kounis syndrome [Recovered/Resolved]
  - Coronary artery occlusion [Recovered/Resolved]
  - Anaphylactic reaction [Recovered/Resolved]
